FAERS Safety Report 11760222 (Version 1)
Quarter: 2015Q4

REPORT INFORMATION
  Report Type: Spontaneous
  Country: US (occurrence: US)
  Receive Date: 20151120
  Receipt Date: 20151120
  Transmission Date: 20160304
  Serious: No
  Sender: FDA-Public Use
  Company Number: US-ASTRAZENECA-2015SE06337

PATIENT
  Age: 54 Year
  Sex: Male
  Weight: 93 kg

DRUGS (1)
  1. KOMBOGLYZE XR [Suspect]
     Active Substance: METFORMIN HYDROCHLORIDE\SAXAGLIPTIN HYDROCHLORIDE
     Indication: PRODUCT USED FOR UNKNOWN INDICATION
     Dosage: 25MG/1000MG 1 DF (DOSAGE FORM) UNKNOWN FREQUENCY
     Route: 048

REACTIONS (1)
  - Blood glucose increased [Unknown]
